FAERS Safety Report 17340235 (Version 3)
Quarter: 2021Q3

REPORT INFORMATION
  Report Type: Spontaneous
  Country: US (occurrence: US)
  Receive Date: 20200129
  Receipt Date: 20210727
  Transmission Date: 20211014
  Serious: No
  Sender: FDA-Public Use
  Company Number: US-B.I. PHARMACEUTICALS,INC./RIDGEFIELD-2020-BI-003570

PATIENT
  Sex: Male

DRUGS (5)
  1. LYRICA [Concomitant]
     Active Substance: PREGABALIN
     Route: 048
  2. LYRICA [Concomitant]
     Active Substance: PREGABALIN
     Route: 048
  3. MARCAINE [Concomitant]
     Active Substance: BUPIVACAINE HYDROCHLORIDE
     Indication: PRODUCT USED FOR UNKNOWN INDICATION
  4. LYRICA [Concomitant]
     Active Substance: PREGABALIN
     Indication: DIABETIC NEUROPATHY
     Dosage: 100 MG TWICE DAILY
  5. CATAPRES [Suspect]
     Active Substance: CLONIDINE HYDROCHLORIDE
     Indication: PRODUCT USED FOR UNKNOWN INDICATION

REACTIONS (11)
  - Muscular weakness [Unknown]
  - Gait disturbance [Unknown]
  - Neuralgia [Unknown]
  - Pain [Unknown]
  - Hypoaesthesia [Unknown]
  - Loss of proprioception [Unknown]
  - Fall [Unknown]
  - Diabetic neuropathy [Unknown]
  - Swelling [Unknown]
  - Neuropathy peripheral [Unknown]
  - Back pain [Unknown]
